FAERS Safety Report 16381706 (Version 1)
Quarter: 2019Q2

REPORT INFORMATION
  Report Type: Spontaneous
  Country: FR (occurrence: FR)
  Receive Date: 20190603
  Receipt Date: 20190603
  Transmission Date: 20190711
  Serious: Yes (Death)
  Sender: FDA-Public Use
  Company Number: FR-TEVA-2019-FR-1057284

PATIENT
  Age: 83 Year
  Sex: Male

DRUGS (4)
  1. ACIDE CLAVULANIQUE [Suspect]
     Active Substance: CLAVULANIC ACID
     Indication: BRONCHITIS
     Route: 042
     Dates: start: 20141128
  2. AMOXICILLINE [Suspect]
     Active Substance: AMOXICILLIN
     Indication: BRONCHITIS
     Route: 042
     Dates: start: 20141128
  3. CONTRAMAL 100 MG/2 ML, SOLUTION INJECTABLE [Suspect]
     Active Substance: TRAMADOL HYDROCHLORIDE
     Indication: PAIN
     Route: 042
     Dates: start: 20141128, end: 20141203
  4. MORPHINE RENAUDIN [Suspect]
     Active Substance: MORPHINE
     Indication: PAIN
     Route: 042
     Dates: start: 20141201, end: 20141203

REACTIONS (2)
  - Pneumonia aspiration [Fatal]
  - Somnolence [Fatal]

NARRATIVE: CASE EVENT DATE: 20141202
